FAERS Safety Report 8831952 (Version 1)
Quarter: 2012Q4

REPORT INFORMATION
  Report Type: Report from Study
  Country: DE (occurrence: DE)
  Receive Date: 20121009
  Receipt Date: 20121009
  Transmission Date: 20130627
  Serious: Yes (Hospitalization)
  Sender: FDA-Public Use
  Company Number: DE-PFIZER INC-2012245096

PATIENT
  Age: 67 Year
  Sex: Female
  Weight: 98 kg

DRUGS (9)
  1. IRINOTECAN HCL [Suspect]
     Indication: COLON CANCER
     Dosage: 406 mg, every 3 weeks
     Route: 042
     Dates: start: 20110905
  2. CAPECITABINE [Suspect]
     Indication: COLON CANCER
     Dosage: 3248 mg, 2x/day
     Route: 048
     Dates: start: 20110905
  3. BEVACIZUMAB [Suspect]
     Indication: COLON CANCER
     Dosage: 7.5 mg, once every 3 weeks
     Route: 042
     Dates: start: 20110905
  4. METOPROLOL [Concomitant]
     Dosage: 100 mg, UNK
     Dates: start: 201103
  5. THIAMAZOLE [Concomitant]
     Dosage: 40 mg, UNK
     Dates: start: 201105, end: 20120618
  6. TORASEMIDE [Concomitant]
     Dosage: 5 mg, UNK
     Dates: start: 201103, end: 20120618
  7. PANTOPRAZOL [Concomitant]
     Dosage: 40 mg, UNK
  8. GLIMEPIRIDE [Concomitant]
     Dosage: 2 mg, UNK
     Dates: start: 201109, end: 20120618
  9. RAMIPRIL [Concomitant]
     Dosage: 25 mg, UNK

REACTIONS (2)
  - Diarrhoea [Recovered/Resolved]
  - Malaise [Recovered/Resolved]
